FAERS Safety Report 8855805 (Version 1)
Quarter: 2012Q4

REPORT INFORMATION
  Report Type: Spontaneous
  Country: US (occurrence: None)
  Receive Date: 20121022
  Receipt Date: 20121022
  Transmission Date: 20130627
  Serious: No
  Sender: FDA-Public Use
  Company Number: None

PATIENT
  Age: 64 Year
  Sex: Male
  Weight: 166 kg

DRUGS (4)
  1. RESTASIS [Suspect]
     Indication: CATARACT
     Dosage: 1 drop per eye
     Route: 047
     Dates: start: 20120906, end: 20121017
  2. BENICAR [Concomitant]
  3. CEFDINIR [Concomitant]
  4. BENZONATATE [Concomitant]

REACTIONS (2)
  - Blood pressure systolic increased [None]
  - Blood pressure diastolic decreased [None]
